FAERS Safety Report 12767280 (Version 1)
Quarter: 2016Q3

REPORT INFORMATION
  Report Type: Spontaneous
  Country: US (occurrence: US)
  Receive Date: 20160921
  Receipt Date: 20160921
  Transmission Date: 20161109
  Serious: Yes (Other)
  Sender: FDA-Public Use
  Company Number: US-GLAXOSMITHKLINE-US2016137134

PATIENT
  Age: 69 Year
  Sex: Female

DRUGS (4)
  1. BUPROPION HCL [Suspect]
     Active Substance: BUPROPION HYDROCHLORIDE
     Indication: SMOKING CESSATION THERAPY
     Dosage: 150 MG, BID
     Route: 048
     Dates: start: 201608
  2. WELLBUTRIN SR [Suspect]
     Active Substance: BUPROPION HYDROCHLORIDE
     Indication: SMOKING CESSATION THERAPY
     Dosage: 150 MG, BID
     Route: 048
     Dates: start: 201608
  3. WELLBUTRIN SR [Suspect]
     Active Substance: BUPROPION HYDROCHLORIDE
     Indication: DEPRESSION
  4. BUPROPION HCL [Suspect]
     Active Substance: BUPROPION HYDROCHLORIDE
     Indication: DEPRESSION

REACTIONS (7)
  - Tremor [Recovering/Resolving]
  - Dizziness [Recovering/Resolving]
  - Off label use [Unknown]
  - Irritability [Recovering/Resolving]
  - Drug ineffective [Unknown]
  - Fatigue [Recovering/Resolving]
  - Breast cancer [Unknown]

NARRATIVE: CASE EVENT DATE: 201608
